FAERS Safety Report 7988977-9 (Version None)
Quarter: 2011Q4

REPORT INFORMATION
  Report Type: 
  Country: None (occurrence: None)
  Receive Date: 20111219
  Receipt Date: 20111213
  Transmission Date: 20120403
  Serious: Yes (Hospitalization, Other)
  Sender: FDA-Public Use
  Company Number: PHHO2011DE019554

PATIENT
  Sex: Male
  Weight: 100 kg

DRUGS (1)
  1. EVEROLIMUS [Suspect]
     Indication: LIVER TRANSPLANT
     Dosage: 6 MG, QD
     Route: 048
     Dates: start: 20111112, end: 20111117

REACTIONS (5)
  - BILE DUCT STENOSIS [None]
  - C-REACTIVE PROTEIN INCREASED [None]
  - INFECTIOUS PERITONITIS [None]
  - HAEMOBILIA [None]
  - IMPAIRED HEALING [None]
